FAERS Safety Report 6519546-5 (Version None)
Quarter: 2009Q4

REPORT INFORMATION
  Report Type: 
  Country: None (occurrence: None)
  Receive Date: 20091228
  Receipt Date: 20091215
  Transmission Date: 20100525
  Serious: Yes (Other)
  Sender: FDA-Public Use
  Company Number: GB-WATSON-2009-10866

PATIENT
  Age: 81 Year
  Sex: Male

DRUGS (3)
  1. OMEPRAZOLE (WATSON LABORATORIES) [Suspect]
     Indication: OESOPHAGITIS
     Dosage: 20 MG, DAILY
     Route: 065
  2. LANSOPRAZOLE [Suspect]
     Indication: DYSPEPSIA
     Dosage: 30 MG, DAILY
  3. PANTOPRAZOLE [Suspect]
     Indication: DRUG USE FOR UNKNOWN INDICATION
     Dosage: 40 MG, DAILY
     Route: 065

REACTIONS (1)
  - LICHENOID KERATOSIS [None]
